FAERS Safety Report 13025290 (Version 1)
Quarter: 2016Q4

REPORT INFORMATION
  Report Type: Report from Study
  Country: US (occurrence: US)
  Receive Date: 20161214
  Receipt Date: 20161214
  Transmission Date: 20170207
  Serious: Yes (Other)
  Sender: FDA-Public Use
  Company Number: US-AMGEN-USASL2016174134

PATIENT
  Age: 75 Year
  Sex: Female

DRUGS (1)
  1. ENBREL [Suspect]
     Active Substance: ETANERCEPT
     Indication: RHEUMATOID ARTHRITIS
     Dosage: UNK UNK, QWK
     Route: 065
     Dates: start: 200501, end: 2010

REACTIONS (5)
  - Drug dose omission [Unknown]
  - Joint arthroplasty [Unknown]
  - Hand deformity [Unknown]
  - Peripheral swelling [Unknown]
  - Pain in extremity [Unknown]
